FAERS Safety Report 8375882-1 (Version None)
Quarter: 2012Q2

REPORT INFORMATION
  Report Type: 
  Country: None (occurrence: None)
  Receive Date: 20120522
  Receipt Date: 20120518
  Transmission Date: 20120825
  Serious: No
  Sender: FDA-Public Use
  Company Number: US-BAYER-2012-049688

PATIENT
  Sex: Female

DRUGS (2)
  1. CLIMARA PRO [Suspect]
     Indication: HOT FLUSH
  2. CLIMARA PRO [Suspect]
     Indication: INSOMNIA

REACTIONS (3)
  - MEDICATION ERROR [None]
  - INSOMNIA [None]
  - HOT FLUSH [None]
